FAERS Safety Report 5875818-9 (Version None)
Quarter: 2008Q3

REPORT INFORMATION
  Report Type: 
  Country: None (occurrence: None)
  Receive Date: 20080909
  Receipt Date: 20080828
  Transmission Date: 20090109
  Serious: Yes (Other)
  Sender: FDA-Public Use
  Company Number: US-PFIZER INC-2008053862

PATIENT
  Sex: Female
  Weight: 63.5 kg

DRUGS (2)
  1. CHANTIX [Suspect]
     Indication: SMOKING CESSATION THERAPY
     Route: 048
  2. ALLERGY MEDICATION [Suspect]
     Indication: SWELLING FACE
     Dates: start: 20080625

REACTIONS (4)
  - HEADACHE [None]
  - MEDICATION ERROR [None]
  - SOMNOLENCE [None]
  - SWELLING FACE [None]
